FAERS Safety Report 5340540-4 (Version None)
Quarter: 2007Q2

REPORT INFORMATION
  Report Type: 
  Country: None (occurrence: None)
  Receive Date: 20070531
  Receipt Date: 20070523
  Transmission Date: 20071010
  Serious: Yes (Other)
  Sender: FDA-Public Use
  Company Number: US-PFIZER INC-2007007736

PATIENT
  Sex: Male
  Weight: 79.4 kg

DRUGS (4)
  1. VIAGRA [Suspect]
     Indication: ERECTILE DYSFUNCTION
     Route: 048
  2. LIPITOR [Interacting]
     Indication: HYPERTENSION
     Route: 048
  3. ANTIHYPERTENSIVES [Concomitant]
  4. DIURETICS [Concomitant]

REACTIONS (6)
  - BODY HEIGHT DECREASED [None]
  - DRUG INEFFECTIVE [None]
  - DRUG INTERACTION [None]
  - GLUCOSE TOLERANCE IMPAIRED [None]
  - HYPERTENSION [None]
  - STOMACH DISCOMFORT [None]
